FAERS Safety Report 9995856 (Version 1)
Quarter: 2014Q1

REPORT INFORMATION
  Report Type: Spontaneous
  Country: US (occurrence: None)
  Receive Date: 20140310
  Receipt Date: 20140310
  Transmission Date: 20141002
  Serious: Yes (Other)
  Sender: FDA-Public Use
  Company Number: None

PATIENT
  Age: 40 Year
  Sex: Female
  Weight: 65.77 kg

DRUGS (1)
  1. CETIRIZINE 10 MG [Suspect]
     Indication: RHINITIS ALLERGIC
     Dosage: OTC ONCE DAILY TAKEN BY MOUTH
     Route: 048

REACTIONS (2)
  - Pruritus generalised [None]
  - Drug withdrawal syndrome [None]
